FAERS Safety Report 8423574-2 (Version None)
Quarter: 2012Q2

REPORT INFORMATION
  Report Type: 
  Country: None (occurrence: None)
  Receive Date: 20120608
  Receipt Date: 20120601
  Transmission Date: 20120825
  Serious: Yes (Hospitalization)
  Sender: FDA-Public Use
  Company Number: IT-B.I. PHARMACEUTICALS,INC./RIDGEFIELD-2012-IT-00167IT

PATIENT
  Sex: Female

DRUGS (6)
  1. AGGRENOX [Suspect]
     Indication: PERIPHERAL ISCHAEMIA
     Dosage: STRENGTH: 200 MG+ 25 MG;DAILY DOSE: 2 POSOLOGIC UNITS
     Route: 048
     Dates: start: 20070101, end: 20120327
  2. ASPIRIN [Suspect]
     Indication: PERIPHERAL ISCHAEMIA
     Dosage: 50 MG
     Route: 048
     Dates: start: 20070101, end: 20120327
  3. ENOXAPARIN SODIUM [Suspect]
     Indication: PERIPHERAL ISCHAEMIA
     Dosage: STRENGTH: 8000 IU AXA /0,8ML ;DAILY DOSE: 2 POSOLOGIC UNIT
     Route: 058
     Dates: start: 20120316, end: 20120327
  4. RAMIPRIL [Concomitant]
     Indication: HYPERTENSION
     Route: 048
  5. ESCITALOPRAM [Concomitant]
     Indication: DEPRESSION
     Dosage: STRENGTH : 20 MG/ML
     Route: 048
  6. LITHIUM CARBONATE [Concomitant]
     Indication: MAJOR DEPRESSION
     Dosage: STRENGTH : 300 MG
     Route: 048

REACTIONS (1)
  - HEPATIC HAEMATOMA [None]
